FAERS Safety Report 25579085 (Version 2)
Quarter: 2025Q3

REPORT INFORMATION
  Report Type: Spontaneous
  Country: EU (occurrence: EU)
  Receive Date: 20250718
  Receipt Date: 20250912
  Transmission Date: 20251021
  Serious: Yes (Congenital Anomaly)
  Sender: VERTEX
  Company Number: None

PATIENT
  Age: 0 Year
  Sex: Female
  Weight: 3 kg

DRUGS (4)
  1. ELEXACAFTOR\IVACAFTOR\TEZACAFTOR [Suspect]
     Active Substance: ELEXACAFTOR\IVACAFTOR\TEZACAFTOR
     Indication: Cystic fibrosis
     Dosage: 2 TABS OF IVACAFTOR 75 MG/TEZACAFTOR 50 MG/ELEXACAFTOR 100 MG
     Route: 064
     Dates: start: 20210602
  2. KALYDECO [Suspect]
     Active Substance: IVACAFTOR
     Indication: Cystic fibrosis
     Dosage: 1 TABLET OF 150 MG/ DAY
     Route: 064
     Dates: start: 20210602
  3. CIPROFLOXACIN [Suspect]
     Active Substance: CIPROFLOXACIN
     Indication: Pseudomonas infection
     Route: 064
     Dates: start: 20241021, end: 20241103
  4. COLISTIMETHATE SODIUM [Suspect]
     Active Substance: COLISTIMETHATE SODIUM
     Indication: Pseudomonas infection
     Route: 064
     Dates: start: 20241021, end: 20241103

REACTIONS (1)
  - Polydactyly [Not Recovered/Not Resolved]

NARRATIVE: CASE EVENT DATE: 20250619
